FAERS Safety Report 7512152 (Version 2)
Quarter: 2014Q3

REPORT INFORMATION
  Report Type: Spontaneous
  Country: US (occurrence: US)
  Receive Date: 20100730
  Receipt Date: 20140825
  Transmission Date: 20150326
  Serious: Yes (Other)
  Sender: FDA-Public Use
  Company Number: US-JNJFOC-20100706956

PATIENT
  Age: 12 Year
  Sex: Female

DRUGS (8)
  1. INFLIXIMAB, RECOMBINANT [Suspect]
     Active Substance: INFLIXIMAB
     Indication: RETINAL DETACHMENT
     Route: 042
  2. INFLIXIMAB, RECOMBINANT [Suspect]
     Active Substance: INFLIXIMAB
     Indication: RETINAL DETACHMENT
     Route: 042
  3. TRIAMCINOLONE [Concomitant]
     Active Substance: TRIAMCINOLONE
     Route: 050
  4. INFLIXIMAB, RECOMBINANT [Suspect]
     Active Substance: INFLIXIMAB
     Indication: RETINAL DETACHMENT
     Route: 042
  5. INFLIXIMAB, RECOMBINANT [Suspect]
     Active Substance: INFLIXIMAB
     Indication: RETINAL DETACHMENT
     Route: 042
  6. INFLIXIMAB, RECOMBINANT [Suspect]
     Active Substance: INFLIXIMAB
     Indication: RETINAL DETACHMENT
     Route: 042
  7. PREDNISONE. [Concomitant]
     Active Substance: PREDNISONE
  8. METHOTREXATE [Concomitant]
     Active Substance: METHOTREXATE
     Route: 048

REACTIONS (1)
  - Drug ineffective for unapproved indication [Unknown]
